FAERS Safety Report 5500643-8 (Version None)
Quarter: 2007Q4

REPORT INFORMATION
  Report Type: 
  Country: None (occurrence: None)
  Receive Date: 20071025
  Receipt Date: 20071010
  Transmission Date: 20080405
  Serious: Yes (Other)
  Sender: FDA-Public Use
  Company Number: 2007US002572

PATIENT
  Age: 48 Year
  Sex: Male

DRUGS (5)
  1. PROGRAF [Suspect]
     Indication: LIVER TRANSPLANT
     Dosage: ORAL; 9 MG, UID/QD, ORAL
     Route: 048
  2. CORTICOSTEROIDS() [Suspect]
     Indication: LIVER TRANSPLANT
  3. MYCOPHENOLATE MOFETIL [Suspect]
     Indication: LIVER TRANSPLANT
     Dosage: 750 MG, BID, ORAL; 1000 MG, BID, ORAL
     Route: 048
  4. PREDNISONE TAB [Suspect]
     Indication: LIVER TRANSPLANT
     Dosage: 5 MG, UID/QD, ORAL
     Route: 048
  5. ALENDRONATE SODIUM [Suspect]
     Indication: OSTEOPENIA
     Dosage: 35 MG, WEEKLY, ORAL
     Route: 048

REACTIONS (7)
  - FOCAL GLOMERULOSCLEROSIS [None]
  - HYPERPLASIA [None]
  - KIDNEY FIBROSIS [None]
  - LIVER TRANSPLANT REJECTION [None]
  - OSTEOPENIA [None]
  - RENAL TUBULAR ATROPHY [None]
  - RENAL VESSEL DISORDER [None]
